FAERS Safety Report 10503868 (Version 1)
Quarter: 2014Q4

REPORT INFORMATION
  Report Type: Spontaneous
  Country: US (occurrence: None)
  Receive Date: 20141007
  Receipt Date: 20141007
  Transmission Date: 20150528
  Serious: No
  Sender: FDA-Public Use
  Company Number: None

PATIENT
  Age: 69 Year
  Sex: Female
  Weight: 57.15 kg

DRUGS (1)
  1. RALOXIFENE HYDROCHLORIDE. [Suspect]
     Active Substance: RALOXIFENE HYDROCHLORIDE
     Indication: OSTEOPOROSIS
     Dates: start: 20140701, end: 20141003

REACTIONS (4)
  - Product substitution issue [None]
  - Temporomandibular joint syndrome [None]
  - Pain in jaw [None]
  - Joint crepitation [None]

NARRATIVE: CASE EVENT DATE: 20141003
